FAERS Safety Report 19959278 (Version 1)
Quarter: 2021Q4

REPORT INFORMATION
  Report Type: Spontaneous
  Country: US (occurrence: US)
  Receive Date: 20211014
  Receipt Date: 20211014
  Transmission Date: 20220303
  Serious: Yes (Other)
  Sender: FDA-Public Use
  Company Number: None

PATIENT
  Age: 15 Year
  Sex: Male
  Weight: 25 kg

DRUGS (6)
  1. VIMPAT [Suspect]
     Active Substance: LACOSAMIDE
     Indication: Epilepsy
     Dates: start: 20210925, end: 20211003
  2. Clonazepam 1.5 mg TID [Concomitant]
     Dates: start: 20210922
  3. Levetiracetam 1000 mg q12h [Concomitant]
     Dates: start: 20210926
  4. Montelukast 10 mg q24h [Concomitant]
     Dates: start: 20210922
  5. Loratadine 10 mg q24h [Concomitant]
     Dates: start: 20210923
  6. Miralax 1 pkt q24h [Concomitant]
     Dates: start: 20211012

REACTIONS (3)
  - Apnoea [None]
  - Respiratory failure [None]
  - Increased bronchial secretion [None]

NARRATIVE: CASE EVENT DATE: 20210927
